FAERS Safety Report 23094061 (Version 2)
Quarter: 2023Q4

REPORT INFORMATION
  Report Type: Spontaneous
  Country: JP (occurrence: JP)
  Receive Date: 20231023
  Receipt Date: 20231108
  Transmission Date: 20240110
  Serious: Yes (Other)
  Sender: FDA-Public Use
  Company Number: JP-SA-2023SA314597

PATIENT
  Sex: Female

DRUGS (1)
  1. KEVZARA [Suspect]
     Active Substance: SARILUMAB
     Indication: Product used for unknown indication
     Dosage: 200 MG, QOW
     Route: 058
     Dates: start: 20231002, end: 202310

REACTIONS (1)
  - Melaena [Unknown]

NARRATIVE: CASE EVENT DATE: 20231001
